FAERS Safety Report 9969430 (Version 1)
Quarter: 2014Q1

REPORT INFORMATION
  Report Type: Spontaneous
  Country: BR (occurrence: BR)
  Receive Date: 20140306
  Receipt Date: 20140306
  Transmission Date: 20141002
  Serious: Yes (Hospitalization)
  Sender: FDA-Public Use
  Company Number: BR-AMGEN-BRASP2014015587

PATIENT
  Age: 73 Year
  Sex: Female
  Weight: 59 kg

DRUGS (5)
  1. ENBREL [Suspect]
     Indication: RHEUMATOID ARTHRITIS
     Dosage: 50 MG, ONCE WEEKLY
     Route: 058
     Dates: start: 200903, end: 201401
  2. ATACAND [Concomitant]
     Dosage: ONCE DAILY
  3. PROSTAT                            /00093602/ [Concomitant]
     Dosage: STRENGTH 1MG ONCE DAILY
  4. NEURONTIN [Concomitant]
     Dosage: STRENGTH 900MG ONCE DIALY
  5. LYRICA [Concomitant]
     Dosage: STRENGTH 150MG TWICE DAILY

REACTIONS (2)
  - Blood pressure decreased [Unknown]
  - Localised infection [Unknown]
